FAERS Safety Report 4512290-5 (Version None)
Quarter: 2004Q4

REPORT INFORMATION
  Report Type: 
  Country: None (occurrence: None)
  Receive Date: 20041129
  Receipt Date: 20041014
  Transmission Date: 20050328
  Serious: Yes (Hospitalization)
  Sender: FDA-Public Use
  Company Number: JP-GLAXOSMITHKLINE-B0348578A

PATIENT
  Age: 61 Year
  Sex: Female
  Weight: 48 kg

DRUGS (9)
  1. VALTREX [Suspect]
     Indication: HERPES ZOSTER
     Dosage: 500MG PER DAY
     Route: 048
     Dates: start: 20041011, end: 20041012
  2. PRECIPITATED CALCIUM CARBONATE [Concomitant]
     Indication: BLOOD PHOSPHORUS
     Dosage: 1500MG PER DAY
     Route: 048
  3. ARTIST [Concomitant]
     Indication: HYPERTENSION
     Dosage: 20MG PER DAY
     Route: 048
  4. BIASAN [Concomitant]
     Indication: ACIDOSIS
     Dosage: 2.2G PER DAY
     Route: 048
  5. CONIEL [Concomitant]
     Indication: HYPERTENSION
     Dosage: 4MG PER DAY
     Route: 048
  6. BAYASPIRIN [Concomitant]
     Indication: CEREBRAL ISCHAEMIA
     Dosage: 100MG PER DAY
     Route: 048
     Dates: start: 20041013, end: 20041014
  7. BLUTAL [Concomitant]
     Indication: ANAEMIA
     Dosage: 40MG PER DAY
     Route: 042
  8. OXAROL [Concomitant]
     Indication: HYPERPARATHYROIDISM SECONDARY
     Dosage: 5MCG PER DAY
     Route: 065
  9. ESPO [Concomitant]
     Indication: ANAEMIA
     Dosage: 1500IU PER DAY

REACTIONS (5)
  - CEREBRAL ISCHAEMIA [None]
  - DIZZINESS [None]
  - DRUG TOXICITY [None]
  - HYPOAESTHESIA [None]
  - VERTIGO [None]
